FAERS Safety Report 6381770-2 (Version None)
Quarter: 2009Q3

REPORT INFORMATION
  Report Type: 
  Country: None (occurrence: None)
  Receive Date: 20090930
  Receipt Date: 20070919
  Transmission Date: 20100115
  Serious: Yes (Other)
  Sender: FDA-Public Use
  Company Number: US-ASTRAZENECA-2007UW16863

PATIENT
  Age: 50 Year
  Sex: Male
  Weight: 111.5 kg

DRUGS (15)
  1. SEROQUEL [Suspect]
     Indication: SLEEP DISORDER
     Route: 048
     Dates: start: 20000101
  2. SEROQUEL [Suspect]
     Dosage: 100 MG - 500 MG
     Route: 048
     Dates: start: 20011212
  3. RISPERDAL [Concomitant]
     Route: 048
     Dates: start: 20011126
  4. RISPERDAL [Concomitant]
     Dates: start: 20050101
  5. ARIPIPRAZOLE [Concomitant]
     Dates: start: 20000101
  6. STELAZINE [Concomitant]
  7. DOCUSATE [Concomitant]
     Route: 048
     Dates: start: 20040420
  8. OMEPRAZOLE [Concomitant]
     Route: 048
     Dates: start: 20040420
  9. TRAZODONE HYDROCHLORIDE [Concomitant]
     Dosage: 50 MG - 100 MG
     Route: 048
     Dates: start: 20040420
  10. DEPAKOTE [Concomitant]
     Route: 048
     Dates: start: 20011212
  11. LISINOPRIL [Concomitant]
     Dosage: 5 MG - 40 MG
     Route: 048
     Dates: start: 20040420
  12. SIMVASTATIN [Concomitant]
     Indication: HYPERCHOLESTEROLAEMIA
     Dosage: 40 MG - 80 MG
     Route: 048
     Dates: start: 20011212
  13. MIRTAZAPINE [Concomitant]
     Dosage: 15 MG - 45 MG
     Route: 048
     Dates: start: 20040505
  14. HYDROXYZINE PAMOATE [Concomitant]
     Route: 048
     Dates: start: 20011212
  15. TERAZOSIN HYDROCHLORIDE [Concomitant]
     Route: 048
     Dates: start: 20011126

REACTIONS (7)
  - BLOOD CHOLESTEROL INCREASED [None]
  - DIABETES MELLITUS [None]
  - DIABETIC COMA [None]
  - DIABETIC RETINOPATHY [None]
  - HYPERCHOLESTEROLAEMIA [None]
  - HYPERLIPIDAEMIA [None]
  - OBESITY [None]
